FAERS Safety Report 5934473-X (Version None)
Quarter: 2008Q4

REPORT INFORMATION
  Report Type: 
  Country: None (occurrence: None)
  Receive Date: 20081029
  Receipt Date: 20081017
  Transmission Date: 20090506
  Serious: Yes (Hospitalization, Other)
  Sender: FDA-Public Use
  Company Number: US-PFIZER INC-2008051218

PATIENT
  Sex: Female
  Weight: 42.727 kg

DRUGS (13)
  1. DETROL LA [Suspect]
     Indication: HYPERTONIC BLADDER
  2. IMDUR [Concomitant]
  3. PLAVIX [Concomitant]
  4. LISINOPRIL [Concomitant]
  5. PRIMIDONE [Concomitant]
  6. LORATADINE [Concomitant]
  7. NEXIUM [Concomitant]
  8. PREVACID [Concomitant]
  9. FOSAMAX [Concomitant]
  10. GLUCOSAMINE [Concomitant]
  11. CALCIUM [Concomitant]
  12. VITAMIN D [Concomitant]
  13. CENTRUM SILVER [Concomitant]

REACTIONS (3)
  - CEREBROVASCULAR ACCIDENT [None]
  - INJURY [None]
  - SYNCOPE [None]
